FAERS Safety Report 6340648-0 (Version None)
Quarter: 2009Q3

REPORT INFORMATION
  Report Type: 
  Country: None (occurrence: None)
  Receive Date: 20090904
  Receipt Date: 20090901
  Transmission Date: 20100115
  Serious: Yes (Other)
  Sender: FDA-Public Use
  Company Number: US-B.I. PHARMACEUTICALS,INC./RIDGEFIELD-2009-BP-10227BP

PATIENT
  Age: 61 Year
  Sex: Female

DRUGS (3)
  1. SPIRIVA [Suspect]
     Indication: CHRONIC OBSTRUCTIVE PULMONARY DISEASE
     Dosage: 18 MCG
     Route: 055
     Dates: start: 20050101
  2. FOSAMAX [Concomitant]
     Indication: BONE DISORDER
  3. ADVAIR HFA [Concomitant]
     Indication: DYSPNOEA

REACTIONS (1)
  - LUNG NEOPLASM MALIGNANT [None]
